FAERS Safety Report 19732232 (Version 2)
Quarter: 2021Q3

REPORT INFORMATION
  Report Type: Spontaneous
  Country: DE (occurrence: DE)
  Receive Date: 20210820
  Receipt Date: 20210823
  Transmission Date: 20211014
  Serious: Yes (Other)
  Sender: FDA-Public Use
  Company Number: DE-JAZZ-2021-DE-005478

PATIENT
  Age: 63 Year
  Sex: Female

DRUGS (1)
  1. VYXEOS [Suspect]
     Active Substance: CYTARABINE\DAUNORUBICIN
     Indication: ACUTE MYELOID LEUKAEMIA
     Dosage: INDUCTION THERAPY AT DAYS 1, 3 AND 5

REACTIONS (4)
  - Pneumonia [Unknown]
  - Febrile neutropenia [Unknown]
  - Fungal infection [Unknown]
  - Gastritis [Unknown]
